FAERS Safety Report 9494639 (Version 1)
Quarter: 2013Q3

REPORT INFORMATION
  Report Type: Spontaneous
  Country: DE (occurrence: DE)
  Receive Date: 20130903
  Receipt Date: 20130903
  Transmission Date: 20140515
  Serious: Yes (Death)
  Sender: FDA-Public Use
  Company Number: DE-ELI_LILLY_AND_COMPANY-DE201308006880

PATIENT
  Age: 78 Year
  Sex: Male

DRUGS (11)
  1. ZYPREXA [Suspect]
     Dosage: 10 MG, QD
     Route: 048
     Dates: start: 20010620
  2. CABASERIL [Concomitant]
     Dosage: 2 MG, QD
     Route: 048
  3. MADOPAR [Concomitant]
     Dosage: 187.5 MG, QD
     Route: 048
  4. MANINIL [Concomitant]
     Dosage: 21 MG, QD
     Route: 048
  5. GLUCOPHAGE [Concomitant]
     Dosage: 1700 MG, QD
     Route: 048
  6. CONCOR [Concomitant]
     Dosage: 2.5 MG, QD
     Route: 048
  7. TOREM                              /01036501/ [Concomitant]
     Dosage: 5 MG, QD
  8. ISCOVER [Concomitant]
     Dosage: 75 MG, QD
     Route: 048
  9. CORANGIN                           /00003201/ [Concomitant]
     Dosage: 40 MG, QD
  10. TRIJODTHYRONIN [Concomitant]
     Dosage: 1 DF, QD
     Route: 048
  11. AKATINOL MEMANTINE [Concomitant]
     Dosage: 20 MG, QD
     Route: 048

REACTIONS (1)
  - Sudden cardiac death [Fatal]
